FAERS Safety Report 16350302 (Version 1)
Quarter: 2019Q2

REPORT INFORMATION
  Report Type: Spontaneous
  Country: US (occurrence: US)
  Receive Date: 20190524
  Receipt Date: 20190524
  Transmission Date: 20190711
  Serious: No
  Sender: FDA-Public Use
  Company Number: US-GLAXOSMITHKLINE-US2019091209

PATIENT
  Age: 86 Year
  Sex: Female

DRUGS (2)
  1. ADVAIR DISKUS [Suspect]
     Active Substance: FLUTICASONE PROPIONATE\SALMETEROL XINAFOATE
     Indication: PRODUCT USED FOR UNKNOWN INDICATION
     Dosage: 1 PUFF(S), BID
     Route: 055
     Dates: start: 201905
  2. LIDOCAINE. [Concomitant]
     Active Substance: LIDOCAINE
     Indication: LICHEN PLANUS
     Dosage: UNK UNK, BID
     Route: 065
     Dates: start: 20190521

REACTIONS (4)
  - Papule [Not Recovered/Not Resolved]
  - Product taste abnormal [Unknown]
  - Dysphonia [Not Recovered/Not Resolved]
  - Lip disorder [Not Recovered/Not Resolved]

NARRATIVE: CASE EVENT DATE: 201905
